FAERS Safety Report 5729664-7 (Version None)
Quarter: 2008Q2

REPORT INFORMATION
  Report Type: 
  Country: None (occurrence: None)
  Receive Date: 20080501
  Receipt Date: 20080428
  Transmission Date: 20081010
  Serious: Yes (Hospitalization)
  Sender: FDA-Public Use
  Company Number: GXKR2008ES03430

PATIENT
  Age: 34 Year
  Sex: Female

DRUGS (1)
  1. METHIMAZOLE [Suspect]
     Indication: HYPERTHYROIDISM
     Dosage: 15 MG/DAY, 10 MG/DAY, 5 MG/DAY

REACTIONS (1)
  - RHABDOMYOLYSIS [None]
